FAERS Safety Report 9630015 (Version 1)
Quarter: 2013Q4

REPORT INFORMATION
  Report Type: Spontaneous
  Country: US (occurrence: US)
  Receive Date: 20131017
  Receipt Date: 20131017
  Transmission Date: 20140711
  Serious: Yes (Other)
  Sender: FDA-Public Use
  Company Number: ALCN2013US005048

PATIENT
  Age: 31 Year
  Sex: Male
  Weight: 146.3 kg

DRUGS (6)
  1. BSS [Suspect]
     Dosage: UNK
     Route: 031
     Dates: start: 20130509, end: 20130509
  2. BETADINE [Suspect]
     Dosage: UNK
     Route: 047
     Dates: start: 20130509, end: 20130509
  3. VIGAMOX [Suspect]
     Dosage: UNK
     Route: 047
     Dates: start: 20130509, end: 20130509
  4. NEVANAC [Suspect]
     Dosage: UNK
     Route: 047
     Dates: start: 20130509, end: 20130509
  5. EPINEPHRINE [Concomitant]
     Dosage: UNK
     Route: 047
     Dates: start: 20130509, end: 20130509
  6. LIDOCAINE [Concomitant]
     Dosage: UNK
     Dates: start: 20130509, end: 20130509

REACTIONS (2)
  - Endophthalmitis [Recovered/Resolved]
  - Off label use [Recovered/Resolved]
